FAERS Safety Report 7710677-0 (Version None)
Quarter: 2011Q3

REPORT INFORMATION
  Report Type: 
  Country: None (occurrence: None)
  Receive Date: 20110825
  Receipt Date: 20110823
  Transmission Date: 20111222
  Serious: No
  Sender: FDA-Public Use
  Company Number: US-PFIZER INC-2011195693

PATIENT
  Sex: Female
  Weight: 68.027 kg

DRUGS (6)
  1. ADVIL LIQUI-GELS [Suspect]
     Indication: NECK PAIN
  2. ADVIL LIQUI-GELS [Suspect]
     Indication: MYALGIA
     Dosage: 200 MG, 2X/DAY
     Route: 048
     Dates: start: 20110805, end: 20110806
  3. ADVIL LIQUI-GELS [Suspect]
     Indication: MUSCULOSKELETAL PAIN
  4. HYDROCHLOROTHIAZIDE [Concomitant]
     Indication: BLOOD PRESSURE ABNORMAL
     Dosage: 25 MG, DAILY
     Route: 048
     Dates: start: 20110101
  5. SIMVASTATIN [Concomitant]
     Indication: BLOOD CHOLESTEROL ABNORMAL
     Dosage: 20 MG, DAILY
     Route: 048
     Dates: start: 20110101
  6. LEVOXYL [Concomitant]
     Indication: THYROID DISORDER
     Dosage: 0.075 MG, DAILY
     Route: 048
     Dates: start: 20110101

REACTIONS (5)
  - PAIN IN JAW [None]
  - EAR PAIN [None]
  - NECK PAIN [None]
  - TOOTHACHE [None]
  - PAIN [None]
